FAERS Safety Report 4960945-0 (Version None)
Quarter: 2006Q2

REPORT INFORMATION
  Report Type: 
  Country: None (occurrence: None)
  Receive Date: 20060403
  Receipt Date: 20040907
  Transmission Date: 20061013
  Serious: Yes (Hospitalization)
  Sender: FDA-Public Use
  Company Number: CH-SANOFI-SYNTHELABO-F01200402720

PATIENT
  Sex: Male

DRUGS (17)
  1. OXALIPLATIN [Suspect]
     Indication: COLORECTAL CANCER METASTATIC
     Route: 042
  2. OXALIPLATIN [Suspect]
     Route: 042
     Dates: start: 20041206, end: 20041206
  3. FLUOROURACIL [Suspect]
     Dosage: 650 MG IV BOLUS THEN 970 IV CONTINUOUS INFUSION, Q2W
     Route: 042
  4. FLUOROURACIL [Suspect]
     Dosage: 650 MG IV BOLUS THEN 970 IV CONTINUOUS INFUSION, Q2W
     Route: 042
     Dates: start: 20041206, end: 20041208
  5. LEUCOVORIN [Suspect]
     Route: 042
  6. LEUCOVORIN [Suspect]
     Route: 042
     Dates: start: 20041206, end: 20041207
  7. BEVACIZUMAB OR PLACEBO [Suspect]
     Route: 042
  8. BEVACIZUMAB OR PLACEBO [Suspect]
     Route: 042
     Dates: start: 20041206, end: 20041206
  9. LOPERAMIDE HYDROCHLORIDE [Concomitant]
     Dosage: UNK
     Route: 065
     Dates: start: 20040723
  10. TRAMADOL HCL [Concomitant]
     Dosage: UNK
     Route: 065
     Dates: start: 20040614
  11. CLEMASTINE [Concomitant]
     Dosage: UNK
     Route: 065
     Dates: start: 20040726, end: 20040726
  12. FORTECORTIN [Concomitant]
     Dosage: UNK
     Route: 065
     Dates: start: 20040725, end: 20040726
  13. ONDANSETRON HYDROCHLORIDE [Concomitant]
     Dosage: UNK
     Route: 065
     Dates: start: 20040726, end: 20040726
  14. DEXAMETHASONE TAB [Concomitant]
     Dosage: UNK
     Route: 065
     Dates: start: 20040726, end: 20040726
  15. TOLTERODINE [Concomitant]
     Dosage: UNK
     Route: 065
     Dates: start: 20040820
  16. INTESTINAL FLORA [Concomitant]
     Dosage: UNK
     Route: 065
     Dates: start: 20040915
  17. CHARBON [Concomitant]
     Dosage: UNK
     Route: 065
     Dates: start: 20040915

REACTIONS (11)
  - AGRANULOCYTOSIS [None]
  - ANOREXIA [None]
  - BACTERIAL SEPSIS [None]
  - BLOOD ALKALINE PHOSPHATASE INCREASED [None]
  - FATIGUE [None]
  - FEBRILE NEUTROPENIA [None]
  - GAMMA-GLUTAMYLTRANSFERASE INCREASED [None]
  - HAEMOGLOBIN DECREASED [None]
  - NAUSEA [None]
  - RENAL IMPAIRMENT [None]
  - VOMITING [None]
